FAERS Safety Report 10290602 (Version 1)
Quarter: 2014Q3

REPORT INFORMATION
  Report Type: Spontaneous
  Country: US (occurrence: None)
  Receive Date: 20140708
  Receipt Date: 20140708
  Transmission Date: 20150326
  Serious: Yes (Congenital Anomaly, Other)
  Sender: FDA-Public Use
  Company Number: None

PATIENT
  Age: 20 Year
  Sex: Female
  Weight: 52.4 kg

DRUGS (4)
  1. METHADONE [Concomitant]
     Active Substance: METHADONE HYDROCHLORIDE
  2. DAILY SMOKER [Concomitant]
  3. PRENATAL VITAMIN [Concomitant]
     Active Substance: VITAMINS
  4. CYTOGAM [Suspect]
     Active Substance: HUMAN CYTOMEGALOVIRUS IMMUNE GLOBULIN
     Indication: CYTOMEGALOVIRUS INFECTION
     Route: 042
     Dates: start: 20140702, end: 20140702

REACTIONS (2)
  - Foetal death [None]
  - Exposure during pregnancy [None]

NARRATIVE: CASE EVENT DATE: 20140702
